FAERS Safety Report 11961911 (Version 2)
Quarter: 2016Q2

REPORT INFORMATION
  Report Type: Spontaneous
  Country: US (occurrence: US)
  Receive Date: 20160126
  Receipt Date: 20160516
  Transmission Date: 20160815
  Serious: No
  Sender: FDA-Public Use
  Company Number: US-ASTRAZENECA-2016SE04683

PATIENT
  Sex: Female

DRUGS (3)
  1. ATORVASTATIN [Concomitant]
     Active Substance: ATORVASTATIN
  2. BYDUREON [Suspect]
     Active Substance: EXENATIDE
     Route: 058
  3. AMLODIPINE [Concomitant]
     Active Substance: AMLODIPINE BESYLATE

REACTIONS (7)
  - Nodule [Unknown]
  - Injection site bruising [Unknown]
  - Injection site mass [Unknown]
  - Product quality issue [Unknown]
  - Injection site pain [Unknown]
  - Underdose [Unknown]
  - Injection site nodule [Unknown]
